FAERS Safety Report 7206721-X (Version None)
Quarter: 2010Q4

REPORT INFORMATION
  Report Type: 
  Country: None (occurrence: None)
  Receive Date: 20101214
  Receipt Date: 20101005
  Transmission Date: 20110411
  Serious: No
  Sender: FDA-Public Use
  Company Number: 2010-00871

PATIENT
  Age: 71 Year
  Sex: Female
  Weight: 81.6475 kg

DRUGS (13)
  1. ZICAM COLD REMEDY NASAL GEL [Suspect]
     Indication: NASOPHARYNGITIS
     Dosage: 2 DOSES, SPRING- 2009 TO SPRING-2010
     Dates: start: 20090101, end: 20100101
  2. OMEPRAZOLE [Concomitant]
  3. METOPROLOL [Concomitant]
  4. TAMOXIFEN CITRATE [Concomitant]
  5. SIMVASTATIN [Concomitant]
  6. ALENDRONATE [Concomitant]
  7. IBUPROFEN [Concomitant]
  8. MULTI-VITAMIN [Concomitant]
  9. FISH OIL [Concomitant]
  10. COSAMIN ASU [Concomitant]
  11. FLAX SEED OIL [Concomitant]
  12. ASPIRIN [Concomitant]
  13. ASCORBIC ACID [Concomitant]

REACTIONS (2)
  - ANOSMIA [None]
  - COUGH [None]
